FAERS Safety Report 21043424 (Version 1)
Quarter: 2022Q3

REPORT INFORMATION
  Report Type: Spontaneous
  Country: ES (occurrence: ES)
  Receive Date: 20220705
  Receipt Date: 20220705
  Transmission Date: 20221027
  Serious: Yes (Other)
  Sender: FDA-Public Use
  Company Number: None

PATIENT
  Age: 71 Year
  Sex: Male

DRUGS (9)
  1. NEURONTIN [Suspect]
     Active Substance: GABAPENTIN
     Indication: Post herpetic neuralgia
     Dosage: 400 MG, 2X/DAY
     Route: 048
     Dates: start: 20220426, end: 20220525
  2. CARVEDILOL CINFA [Concomitant]
     Dosage: 6.25 MG, 2X/DAY
     Route: 048
     Dates: start: 20120614
  3. HYDROCHLOROTHIAZIDE\OLMESARTAN MEDOXOMIL [Concomitant]
     Active Substance: HYDROCHLOROTHIAZIDE\OLMESARTAN MEDOXOMIL
     Indication: Hypertension
     Dosage: 1 DF, 1X/DAY (40MG/12.5 MG)
     Route: 048
     Dates: start: 20220531
  4. ATORVASTATIN CALCIUM [Concomitant]
     Active Substance: ATORVASTATIN CALCIUM
     Indication: Dyslipidaemia
     Dosage: 80 MG, 1X/DAY
     Route: 048
     Dates: start: 20200227
  5. METFORMIN [Concomitant]
     Active Substance: METFORMIN HYDROCHLORIDE
     Indication: Type 2 diabetes mellitus
     Dosage: 850 MG, 2X/DAY
     Route: 048
  6. ZOLPIDEM TARTRATE [Concomitant]
     Active Substance: ZOLPIDEM TARTRATE
     Dosage: 10 MG, 1X/DAY
     Route: 048
     Dates: start: 20220509
  7. DOXAZOSINA NEO CINFA [Concomitant]
     Dosage: 4 MG, 2X/DAY
     Route: 048
     Dates: start: 20200227
  8. OMEPRAZOLE [Concomitant]
     Active Substance: OMEPRAZOLE
     Dosage: 20 MG, 1X/DAY
     Route: 048
     Dates: start: 20120510
  9. ASPIRIN [Concomitant]
     Active Substance: ASPIRIN
     Dosage: 300 MG, 1X/DAY
     Route: 048
     Dates: start: 20190613

REACTIONS (5)
  - Dizziness [Recovered/Resolved]
  - Syncope [Recovered/Resolved]
  - Somnolence [Recovered/Resolved]
  - Asthenia [Recovered/Resolved]
  - Fall [Recovered/Resolved]

NARRATIVE: CASE EVENT DATE: 20220504
